FAERS Safety Report 10209564 (Version 5)
Quarter: 2014Q3

REPORT INFORMATION
  Report Type: Report from Study
  Country: ZA (occurrence: ZA)
  Receive Date: 20140602
  Receipt Date: 20140811
  Transmission Date: 20150326
  Serious: Yes (Hospitalization)
  Sender: FDA-Public Use
  Company Number: ZA-ROCHE-1408301

PATIENT
  Age: 59 Year
  Sex: Female
  Weight: 59.1 kg

DRUGS (4)
  1. VEMURAFENIB [Suspect]
     Active Substance: VEMURAFENIB
     Indication: NEOPLASM MALIGNANT
     Dosage: DATE OF LAST DOSE PRIOR TO EVENT (CELLULITIS) ONSET : 22/MAY/2014?DATE OF LAST DOSE PRIOR TO EVENT (
     Route: 048
     Dates: start: 20140514
  2. MYPRODOL [Concomitant]
     Active Substance: ACETAMINOPHEN\CODEINE\IBUPROFEN
     Indication: ARTHRITIS
  3. CORTODERM (SOUTH AFRICA) [Concomitant]
     Route: 065
     Dates: start: 20140523, end: 20140530
  4. ZOLNOX [Concomitant]
     Indication: INSOMNIA
     Route: 065
     Dates: start: 20140125

REACTIONS (2)
  - Arthralgia [Recovered/Resolved]
  - Cellulitis [Recovered/Resolved]

NARRATIVE: CASE EVENT DATE: 20140519
